FAERS Safety Report 8232037-9 (Version None)
Quarter: 2012Q1

REPORT INFORMATION
  Report Type: 
  Country: None (occurrence: None)
  Receive Date: 20120323
  Receipt Date: 20120315
  Transmission Date: 20120608
  Serious: Yes (Death)
  Sender: FDA-Public Use
  Company Number: US-UCBSA-030670

PATIENT
  Age: 31 Year
  Sex: Male
  Weight: 98 kg

DRUGS (11)
  1. CALCIUM CARBONATE [Concomitant]
     Indication: DYSPEPSIA
     Dates: start: 20101130
  2. IBUPROFEN (ADVIL) [Concomitant]
  3. PENNSAID [Concomitant]
     Indication: MYALGIA
     Dosage: 16.05 MG/ML
     Dates: start: 20110131
  4. DEPAKOTE [Concomitant]
     Dosage: 500 MG EVERY MORNING AND 1000 MG ONCE EVERY NIGHT
     Dates: start: 20101201, end: 20101207
  5. OMEPRAZOLE [Concomitant]
     Indication: DYSPEPSIA
     Dates: start: 20110311
  6. DEPAKOTE [Concomitant]
     Dates: start: 20101208, end: 20101215
  7. LACOSAMIDE [Suspect]
     Indication: EPILEPSY
     Route: 048
     Dates: start: 20101108
  8. ADDERALL 5 [Concomitant]
     Indication: ATTENTION DEFICIT/HYPERACTIVITY DISORDER
     Dates: start: 20100101
  9. DEPAKOTE [Concomitant]
     Dates: start: 20100804, end: 20101130
  10. TYLENOL [Concomitant]
     Indication: BACK PAIN
     Dates: start: 19990101
  11. DEPAKOTE [Concomitant]
     Indication: EPILEPSY
     Dosage: 500 MG AT BED TIME
     Dates: start: 20101216, end: 20110112

REACTIONS (1)
  - DEATH [None]
